FAERS Safety Report 6761700-1 (Version None)
Quarter: 2010Q2

REPORT INFORMATION
  Report Type: 
  Country: None (occurrence: None)
  Receive Date: 20100517
  Receipt Date: 20100505
  Transmission Date: 20101027
  Serious: Yes (Death, Hospitalization, Other)
  Sender: FDA-Public Use
  Company Number: AECAN201000113

PATIENT
  Age: 77 Year
  Sex: Male
  Weight: 97 kg

DRUGS (22)
  1. GAMUNEX [Suspect]
     Indication: MYASTHENIA GRAVIS
     Dosage: 40 GM; TOTAL; IV
     Route: 042
     Dates: start: 20100331, end: 20100331
  2. PRIVIGEN [Suspect]
     Indication: MYASTHENIA GRAVIS
     Dosage: 40 GM; QD; IV
     Route: 042
     Dates: start: 20100401, end: 20100404
  3. PRIVIGEN [Suspect]
  4. PRIVIGEN [Suspect]
  5. FELODIPINE [Concomitant]
  6. MORPHINE [Concomitant]
  7. ACETAMINOPHEN [Concomitant]
  8. HYDROMORPHONE HCL [Concomitant]
  9. HEPARIN [Concomitant]
  10. PREDNISONE [Concomitant]
  11. LORAZEPAM [Concomitant]
  12. DIMENHYDRINATE [Concomitant]
  13. FUROSEMIDE [Concomitant]
  14. VITAMIN D /00318501/ [Concomitant]
  15. PROBENECID [Concomitant]
  16. CALCIUM CARBONATE [Concomitant]
  17. PYRIDOSTIGMINE BROMIDE [Concomitant]
  18. SALBUTAMOL [Concomitant]
  19. IPRATROPIUM [Concomitant]
  20. SIMVASTATIN [Concomitant]
  21. FLUTICASONE [Concomitant]
  22. CEFTRIAXONE [Concomitant]

REACTIONS (3)
  - COOMBS DIRECT TEST POSITIVE [None]
  - HAEMOGLOBIN DECREASED [None]
  - PULMONARY EMBOLISM [None]
